FAERS Safety Report 14398777 (Version 1)
Quarter: 2018Q1

REPORT INFORMATION
  Report Type: Spontaneous
  Country: US (occurrence: US)
  Receive Date: 20180117
  Receipt Date: 20180117
  Transmission Date: 20180509
  Serious: No
  Sender: FDA-Public Use
  Company Number: US-B.I. PHARMACEUTICALS,INC./RIDGEFIELD-2018-BI-001702

PATIENT
  Age: 60 Year
  Sex: Female

DRUGS (2)
  1. VENTOLIN [Concomitant]
     Active Substance: ALBUTEROL SULFATE
     Indication: PRODUCT USED FOR UNKNOWN INDICATION
     Route: 065
  2. SPIRIVA [Suspect]
     Active Substance: TIOTROPIUM BROMIDE MONOHYDRATE
     Indication: CHRONIC OBSTRUCTIVE PULMONARY DISEASE
     Dosage: STRENGTH: 18 MCG; ADMINISTRATION CORRECT? NO; ACTION TAKEN: DOSE NOT CHANGED
     Route: 055
     Dates: start: 201711

REACTIONS (5)
  - Abdominal distension [Not Recovered/Not Resolved]
  - Feeling jittery [Recovered/Resolved]
  - Anxiety [Not Recovered/Not Resolved]
  - Incorrect route of drug administration [Recovered/Resolved]
  - Respiratory rate increased [Recovered/Resolved]

NARRATIVE: CASE EVENT DATE: 20180110
